FAERS Safety Report 10490299 (Version 1)
Quarter: 2014Q4

REPORT INFORMATION
  Report Type: Spontaneous
  Country: US (occurrence: US)
  Receive Date: 20141002
  Receipt Date: 20141002
  Transmission Date: 20150528
  Serious: Yes (Other)
  Sender: FDA-Public Use
  Company Number: US-INCYTE CORPORATION-2014IN002799

PATIENT
  Sex: Female
  Weight: 58.96 kg

DRUGS (4)
  1. LIOTHYRONINE SODIUM. [Concomitant]
     Active Substance: LIOTHYRONINE SODIUM
     Dosage: 5 MCG, UNK
  2. JAKAFI [Suspect]
     Active Substance: RUXOLITINIB
     Dosage: 10 MG, BID
     Route: 048
     Dates: start: 20140506
  3. ARMOUR THYROID [Concomitant]
     Active Substance: THYROID, PORCINE\THYROID, UNSPECIFIED
     Dosage: 15 MG, UNK
  4. FLUOCINOLONE ACETONIDE. [Concomitant]
     Active Substance: FLUOCINOLONE ACETONIDE
     Dosage: 0.01 %, UNK

REACTIONS (4)
  - Dysphagia [Recovering/Resolving]
  - Throat irritation [Recovering/Resolving]
  - Hypothyroidism [Recovering/Resolving]
  - Body height decreased [Recovering/Resolving]
